FAERS Safety Report 19236311 (Version 1)
Quarter: 2021Q2

REPORT INFORMATION
  Report Type: Spontaneous
  Country: US (occurrence: US)
  Receive Date: 20210510
  Receipt Date: 20210510
  Transmission Date: 20210717
  Serious: Yes (Other)
  Sender: FDA-Public Use
  Company Number: US-CADILA HEALTHCARE LIMITED-US-ZYDUS-065467

PATIENT

DRUGS (6)
  1. METHYLPREDNISOLONE. [Suspect]
     Active Substance: METHYLPREDNISOLONE
     Indication: INFLAMMATION
     Dosage: UNK
     Route: 065
  2. IMMUNOGLOBULIN G HUMAN [Concomitant]
     Active Substance: HUMAN IMMUNOGLOBULIN G
     Indication: INFLAMMATION
     Dosage: UNK
     Route: 042
  3. INSULIN [Concomitant]
     Active Substance: INSULIN NOS
     Indication: HYPERGLYCAEMIC HYPEROSMOLAR NONKETOTIC SYNDROME
  4. EPINEPHRINE. [Concomitant]
     Active Substance: EPINEPHRINE
     Indication: POSITIVE CARDIAC INOTROPIC EFFECT
  5. NOREPINEPHRINE. [Concomitant]
     Active Substance: NOREPINEPHRINE
     Indication: POSITIVE CARDIAC INOTROPIC EFFECT
  6. REMDESIVIR. [Concomitant]
     Active Substance: REMDESIVIR
     Indication: INFLAMMATION
     Dosage: UNK

REACTIONS (4)
  - Rebound effect [Recovered/Resolved]
  - Renal impairment [Recovered/Resolved]
  - Inflammatory marker increased [Recovered/Resolved]
  - Pyrexia [Recovered/Resolved]
